FAERS Safety Report 8815788 (Version 1)
Quarter: 2012Q4

REPORT INFORMATION
  Report Type: 
  Country: US (occurrence: US)
  Receive Date: 20120928
  Receipt Date: 20120928
  Transmission Date: 20130627
  Serious: Yes (Death)
  Sender: FDA-Public Use
  Company Number: US-ABBOTT-12P-163-0988265-00

PATIENT
  Sex: Male

DRUGS (1)
  1. LEUPROLIDE ACETATE DEPOT [Suspect]
     Indication: UROGENITAL DISORDER

REACTIONS (1)
  - Death [Fatal]
